FAERS Safety Report 10227974 (Version 2)
Quarter: 2014Q3

REPORT INFORMATION
  Report Type: Spontaneous
  Country: JP (occurrence: JP)
  Receive Date: 20140610
  Receipt Date: 20140924
  Transmission Date: 20150326
  Serious: Yes (Other)
  Sender: FDA-Public Use
  Company Number: PHHY2014JP069925

PATIENT
  Age: 77 Year
  Sex: Female

DRUGS (3)
  1. EXELON PATCH [Suspect]
     Active Substance: RIVASTIGMINE
     Dosage: 9 MG, UNK
     Route: 062
  2. EXELON PATCH [Suspect]
     Active Substance: RIVASTIGMINE
     Dosage: 9 MG, UNK
     Route: 062
  3. EXELON PATCH [Suspect]
     Active Substance: RIVASTIGMINE
     Indication: DEMENTIA ALZHEIMER^S TYPE
     Dosage: 4.5 MG, DAILY
     Route: 062

REACTIONS (6)
  - Application site erythema [Unknown]
  - Behavioural and psychiatric symptoms of dementia [Unknown]
  - Pruritus generalised [Recovered/Resolved]
  - Application site pruritus [Unknown]
  - Cognitive disorder [Unknown]
  - Dermatitis allergic [Recovered/Resolved]
